FAERS Safety Report 6258361-7 (Version None)
Quarter: 2009Q3

REPORT INFORMATION
  Report Type: 
  Country: None (occurrence: None)
  Receive Date: 20090702
  Receipt Date: 20090624
  Transmission Date: 20100115
  Serious: Yes (Other)
  Sender: FDA-Public Use
  Company Number: 1000007046

PATIENT
  Sex: Male

DRUGS (1)
  1. DINOPROSTONE (DINOPROSTONE) (VAGINAL INSERT) [Suspect]
     Dosage: TRANSPLACENTAL
     Route: 064
     Dates: start: 20090601, end: 20090601

REACTIONS (3)
  - MATERNAL DRUGS AFFECTING FOETUS [None]
  - MULTI-ORGAN FAILURE [None]
  - NEONATAL ASPHYXIA [None]
